FAERS Safety Report 9478495 (Version 1)
Quarter: 2013Q3

REPORT INFORMATION
  Report Type: Spontaneous
  Country: FR (occurrence: FR)
  Receive Date: 20130827
  Receipt Date: 20130827
  Transmission Date: 20140515
  Serious: Yes (Other)
  Sender: FDA-Public Use
  Company Number: FR-ROCHE-1266665

PATIENT
  Sex: Male

DRUGS (2)
  1. RIVOTRIL [Suspect]
     Indication: PSYCHOTIC DISORDER
     Route: 048
  2. RIVOTRIL [Suspect]
     Indication: OFF LABEL USE

REACTIONS (2)
  - Amnesia [Not Recovered/Not Resolved]
  - Somnambulism [Not Recovered/Not Resolved]
